FAERS Safety Report 7513716-5 (Version None)
Quarter: 2011Q2

REPORT INFORMATION
  Report Type: 
  Country: None (occurrence: None)
  Receive Date: 20110531
  Receipt Date: 20110526
  Transmission Date: 20111010
  Serious: Yes (Death)
  Sender: FDA-Public Use
  Company Number: PHHY2011GB46363

PATIENT
  Age: 27 Year
  Sex: Male

DRUGS (6)
  1. DIAZEPAM [Suspect]
  2. ALCOHOL [Suspect]
  3. OXAZEPAM [Suspect]
  4. DMD [Suspect]
  5. DIHYDROCODEINE BITARTRATE INJ [Suspect]
  6. METHADONE HCL [Suspect]

REACTIONS (1)
  - STAB WOUND [None]
